FAERS Safety Report 9648562 (Version 4)
Quarter: 2014Q2

REPORT INFORMATION
  Report Type: Spontaneous
  Country: BR (occurrence: BR)
  Receive Date: 20131028
  Receipt Date: 20140624
  Transmission Date: 20141212
  Serious: Yes (Other)
  Sender: FDA-Public Use
  Company Number: BR-BAYER-2013-130214

PATIENT
  Age: 34 Year
  Sex: Female

DRUGS (1)
  1. QLAIRA [Suspect]
     Indication: CONTRACEPTION
     Dosage: 1 DF, QD
     Route: 048
     Dates: start: 2013, end: 20131019

REACTIONS (7)
  - Uterine haematoma [Not Recovered/Not Resolved]
  - Pregnancy on oral contraceptive [Recovered/Resolved]
  - Drug ineffective [None]
  - Nausea [Recovered/Resolved]
  - Abdominal pain [Recovered/Resolved]
  - Urinary tract infection [None]
  - Premature rupture of membranes [None]
